FAERS Safety Report 12870637 (Version 1)
Quarter: 2016Q4

REPORT INFORMATION
  Report Type: Spontaneous
  Country: CH (occurrence: CH)
  Receive Date: 20161021
  Receipt Date: 20161021
  Transmission Date: 20170207
  Serious: Yes (Hospitalization)
  Sender: FDA-Public Use
  Company Number: CH-PFIZER INC-2016487859

PATIENT
  Age: 29 Year
  Sex: Male

DRUGS (4)
  1. SOLIAN [Suspect]
     Active Substance: AMISULPRIDE
     Dosage: 600 MG, DAILY
     Route: 048
     Dates: start: 20160723
  2. TEMESTA [Suspect]
     Active Substance: LORAZEPAM
     Dosage: 1 MG, 3X/DAY
     Route: 048
     Dates: start: 20160623
  3. SAROTEN [Concomitant]
     Active Substance: AMITRIPTYLINE
     Dosage: 50 MG, 2X/DAY
     Route: 048
     Dates: start: 20160624
  4. SOLIAN [Suspect]
     Active Substance: AMISULPRIDE
     Dosage: 400 MG, 2X/DAY
     Route: 048
     Dates: start: 20160622, end: 20160723

REACTIONS (1)
  - Akathisia [Recovered/Resolved]

NARRATIVE: CASE EVENT DATE: 20160716
